FAERS Safety Report 5715778-4 (Version None)
Quarter: 2008Q2

REPORT INFORMATION
  Report Type: 
  Country: None (occurrence: None)
  Receive Date: 20080424
  Receipt Date: 20080424
  Transmission Date: 20081010
  Serious: Yes (Life-Threatening, Other)
  Sender: FDA-Public Use
  Company Number: None

PATIENT
  Age: 58 Year
  Sex: Female
  Weight: 63.5036 kg

DRUGS (1)
  1. HEPARIN [Suspect]

REACTIONS (5)
  - CARDIOGENIC SHOCK [None]
  - COAGULATION TIME PROLONGED [None]
  - CORONARY ARTERY OCCLUSION [None]
  - RETROPERITONEAL HAEMATOMA [None]
  - URINARY RETENTION [None]
